FAERS Safety Report 14029669 (Version 1)
Quarter: 2017Q4

REPORT INFORMATION
  Report Type: Spontaneous
  Country: US (occurrence: US)
  Receive Date: 20171002
  Receipt Date: 20171002
  Transmission Date: 20180321
  Serious: No
  Sender: FDA-Public Use
  Company Number: US-JAZZ-2017-US-010668

PATIENT
  Age: 34 Year
  Sex: Female

DRUGS (12)
  1. XYREM [Suspect]
     Active Substance: SODIUM OXYBATE
     Dosage: 3.25 G, QD; SECOND DOSE
     Route: 048
     Dates: start: 201704
  2. SUBOXONE [Concomitant]
     Active Substance: BUPRENORPHINE HYDROCHLORIDE\NALOXONE HYDROCHLORIDE
  3. XYREM [Suspect]
     Active Substance: SODIUM OXYBATE
     Dosage: 3.75 G, QD; FIRST DOSE
     Route: 048
     Dates: start: 201704
  4. QUETIAPINE. [Suspect]
     Active Substance: QUETIAPINE
     Indication: PRODUCT USED FOR UNKNOWN INDICATION
     Dosage: 150MG
  5. QUETIAPINE. [Suspect]
     Active Substance: QUETIAPINE
     Dosage: 300MG
  6. QUETIAPINE FUMARATE. [Concomitant]
     Active Substance: QUETIAPINE FUMARATE
  7. XYREM [Suspect]
     Active Substance: SODIUM OXYBATE
     Indication: NARCOLEPSY
     Dosage: 1.75G, BID
     Route: 048
     Dates: start: 201608, end: 201609
  8. OMEPRAZOLE. [Concomitant]
     Active Substance: OMEPRAZOLE
  9. XYREM [Suspect]
     Active Substance: SODIUM OXYBATE
     Dosage: DOSE ADJUSTMENT
     Route: 048
     Dates: start: 201609, end: 201704
  10. NUVIGIL [Concomitant]
     Active Substance: ARMODAFINIL
  11. CLONAZEPAM. [Concomitant]
     Active Substance: CLONAZEPAM
  12. WELLBUTRIN [Concomitant]
     Active Substance: BUPROPION HYDROCHLORIDE

REACTIONS (4)
  - Affect lability [Not Recovered/Not Resolved]
  - Restless legs syndrome [Unknown]
  - Malaise [Unknown]
  - Fatigue [Not Recovered/Not Resolved]

NARRATIVE: CASE EVENT DATE: 20170814
